FAERS Safety Report 11572724 (Version 2)
Quarter: 2015Q4

REPORT INFORMATION
  Report Type: Spontaneous
  Country: CN (occurrence: CN)
  Receive Date: 20150929
  Receipt Date: 20151016
  Transmission Date: 20160304
  Serious: Yes (Hospitalization)
  Sender: FDA-Public Use
  Company Number: CN-ASTRAZENECA-2015SE93264

PATIENT
  Age: 34 Year
  Sex: Male

DRUGS (7)
  1. SYMBICORT [Suspect]
     Active Substance: BUDESONIDE\FORMOTEROL FUMARATE DIHYDRATE
     Indication: PULMONARY BULLA
     Dosage: 160 UG 1 INHALATION DAILY
     Route: 055
  2. SYMBICORT [Suspect]
     Active Substance: BUDESONIDE\FORMOTEROL FUMARATE DIHYDRATE
     Indication: BRONCHIECTASIS
     Dosage: 320/ 4.5 DAILY
     Route: 055
     Dates: start: 20150401
  3. SYMBICORT [Suspect]
     Active Substance: BUDESONIDE\FORMOTEROL FUMARATE DIHYDRATE
     Indication: BRONCHIECTASIS
     Dosage: 160 UG 1 INHALATION DAILY
     Route: 055
  4. SYMBICORT [Suspect]
     Active Substance: BUDESONIDE\FORMOTEROL FUMARATE DIHYDRATE
     Indication: CHRONIC OBSTRUCTIVE PULMONARY DISEASE
     Dosage: 320/ 4.5 DAILY
     Route: 055
     Dates: start: 20150401
  5. SYMBICORT [Suspect]
     Active Substance: BUDESONIDE\FORMOTEROL FUMARATE DIHYDRATE
     Indication: PULMONARY BULLA
     Dosage: 320/ 4.5 DAILY
     Route: 055
     Dates: start: 20150401
  6. SYMBICORT [Suspect]
     Active Substance: BUDESONIDE\FORMOTEROL FUMARATE DIHYDRATE
     Indication: CHRONIC OBSTRUCTIVE PULMONARY DISEASE
     Dosage: 160 UG 1 INHALATION DAILY
     Route: 055
  7. TIOTROPIUM BROMIDE [Concomitant]
     Active Substance: TIOTROPIUM BROMIDE

REACTIONS (4)
  - Eye oedema [Not Recovered/Not Resolved]
  - Bronchiectasis [Unknown]
  - Intentional product use issue [Unknown]
  - Back pain [Recovered/Resolved]
